FAERS Safety Report 7469991-9 (Version None)
Quarter: 2011Q2

REPORT INFORMATION
  Report Type: 
  Country: None (occurrence: None)
  Receive Date: 20110510
  Receipt Date: 20110503
  Transmission Date: 20111010
  Serious: Yes (Hospitalization)
  Sender: FDA-Public Use
  Company Number: FR-KINGPHARMUSA00001-K201100538

PATIENT
  Age: 81 Year
  Sex: Male

DRUGS (11)
  1. PLAVIX [Concomitant]
     Dosage: UNK
  2. PRAVIGARD PAC (COPACKAGED) [Concomitant]
     Dosage: UNK
  3. ESOMEPRAZOLE SODIUM [Suspect]
     Dosage: 20 MG, QD
     Route: 048
  4. CASODEX [Suspect]
     Dosage: 80 MG, QD
     Route: 048
  5. ACEBUTOLOL [Suspect]
     Dosage: UNK
  6. EZETIMIBE [Concomitant]
     Dosage: UNK
  7. ALTACE [Suspect]
     Route: 048
  8. DAFALGAN [Concomitant]
     Dosage: UNK
  9. NORDAZ [Suspect]
     Dosage: UNK
  10. LANTUS [Concomitant]
     Dosage: UNK
  11. TAMSULOSIN HCL [Suspect]
     Dosage: UNK

REACTIONS (5)
  - FALL [None]
  - HYPOTENSION [None]
  - LOSS OF CONSCIOUSNESS [None]
  - HEAD INJURY [None]
  - MALAISE [None]
